FAERS Safety Report 6601376-7 (Version None)
Quarter: 2010Q1

REPORT INFORMATION
  Report Type: 
  Country: None (occurrence: None)
  Receive Date: 20100224
  Receipt Date: 20100224
  Transmission Date: 20100710
  Serious: Yes (Life-Threatening, Hospitalization, Other)
  Sender: FDA-Public Use
  Company Number: None

PATIENT
  Sex: Female

DRUGS (2)
  1. TYLENOL-500 [Suspect]
     Indication: ARTHRITIS
     Dosage: SEE PAGES
  2. TYLENOL-500 [Suspect]
     Indication: ARTHRITIS

REACTIONS (6)
  - ABDOMINAL DISCOMFORT [None]
  - FAECES DISCOLOURED [None]
  - MASTECTOMY [None]
  - NAUSEA [None]
  - PRODUCT QUALITY ISSUE [None]
  - VOMITING [None]
